FAERS Safety Report 7623022-6 (Version None)
Quarter: 2011Q3

REPORT INFORMATION
  Report Type: 
  Country: None (occurrence: None)
  Receive Date: 20110720
  Receipt Date: 20110708
  Transmission Date: 20111222
  Serious: Yes (Hospitalization, Other)
  Sender: FDA-Public Use
  Company Number: AR-AMGEN-ARGSP2011015027

PATIENT
  Age: 50 Year
  Sex: Male

DRUGS (2)
  1. ENBREL [Suspect]
     Indication: PSORIATIC ARTHROPATHY
     Dosage: 50 MG, WEEKLY
     Route: 058
     Dates: start: 20100903, end: 20110530
  2. ALENDRONATE SODIUM [Suspect]
     Indication: PRODUCT USED FOR UNKNOWN INDICATION
     Dosage: UNK

REACTIONS (10)
  - NEPHROTIC SYNDROME [None]
  - DRY SKIN [None]
  - ADVERSE DRUG REACTION [None]
  - PRURITUS GENERALISED [None]
  - BURNING SENSATION [None]
  - CONDITION AGGRAVATED [None]
  - HYPERSENSITIVITY [None]
  - BLISTER [None]
  - SKIN DISORDER [None]
  - RASH GENERALISED [None]
